FAERS Safety Report 7756628-4 (Version None)
Quarter: 2011Q3

REPORT INFORMATION
  Report Type: 
  Country: None (occurrence: None)
  Receive Date: 20110916
  Receipt Date: 20110914
  Transmission Date: 20111222
  Serious: Yes (Death, Hospitalization)
  Sender: FDA-Public Use
  Company Number: PHHO2011NL14264

PATIENT
  Sex: Female

DRUGS (4)
  1. METOPROLOL TARTRATE [Concomitant]
     Indication: HYPERTENSION
     Dosage: 100 BQ, UNK
     Route: 048
  2. LETROZOLE [Suspect]
     Indication: BREAST CANCER
     Dosage: UNK
     Dates: start: 20040415
  3. SINTROM [Concomitant]
     Indication: VENOUS THROMBOSIS
     Dosage: UNK
     Route: 048
     Dates: start: 19990101
  4. METFORMIN HCL [Concomitant]
     Indication: DIABETES MELLITUS
     Dosage: 500 MG, UNK
     Route: 048
     Dates: start: 20080101

REACTIONS (2)
  - NEOPLASM MALIGNANT [None]
  - COLON CANCER [None]
